FAERS Safety Report 18615992 (Version 2)
Quarter: 2021Q1

REPORT INFORMATION
  Report Type: Report from Study
  Country: None (occurrence: AT)
  Receive Date: 20201214
  Receipt Date: 20210315
  Transmission Date: 20210419
  Serious: Yes (Other)
  Sender: FDA-Public Use
  Company Number: AT-ABBVIE-20K-009-3689297-00

PATIENT
  Sex: Female

DRUGS (2)
  1. HUMIRA [Suspect]
     Active Substance: ADALIMUMAB
     Route: 058
     Dates: start: 202101
  2. HUMIRA [Suspect]
     Active Substance: ADALIMUMAB
     Indication: CROHN^S DISEASE
     Route: 058
     Dates: start: 20190926, end: 202101

REACTIONS (4)
  - Intestinal haemorrhage [Not Recovered/Not Resolved]
  - Anal haemorrhage [Recovering/Resolving]
  - Therapeutic response shortened [Not Recovered/Not Resolved]
  - Crohn^s disease [Recovering/Resolving]

NARRATIVE: CASE EVENT DATE: 202011
